FAERS Safety Report 5714774-0 (Version None)
Quarter: 2008Q2

REPORT INFORMATION
  Report Type: 
  Country: None (occurrence: None)
  Receive Date: 20080423
  Receipt Date: 20080422
  Transmission Date: 20081010
  Serious: Yes (Other)
  Sender: FDA-Public Use
  Company Number: US-BRISTOL-MYERS SQUIBB COMPANY-14153126

PATIENT
  Age: 3 Year
  Sex: Male

DRUGS (2)
  1. TRIAMCINOLONE [Suspect]
     Dosage: 1 DOSAGE FORM = 4 MG/0.1ML INJECTION.
  2. CRYOTHERAPY [Suspect]

REACTIONS (3)
  - INTRAOCULAR PRESSURE INCREASED [None]
  - RETINAL DETACHMENT [None]
  - RETINOPATHY PROLIFERATIVE [None]
